FAERS Safety Report 8077610-6 (Version None)
Quarter: 2012Q1

REPORT INFORMATION
  Report Type: 
  Country: None (occurrence: None)
  Receive Date: 20120127
  Receipt Date: 20120124
  Transmission Date: 20120608
  Serious: Yes (Hospitalization, Congenital Anomaly, Other)
  Sender: FDA-Public Use
  Company Number: US-PFIZER INC-2011159771

PATIENT
  Sex: Male
  Weight: 3 kg

DRUGS (9)
  1. ZOLOFT [Suspect]
     Indication: PANIC ATTACK
  2. COLACE [Concomitant]
     Dosage: UNK
     Route: 064
  3. ACETYLSALICYLIC ACID [Concomitant]
     Indication: ATRIAL SEPTAL DEFECT
     Route: 064
  4. ZOLOFT [Suspect]
     Indication: ANXIETY
     Dosage: 50 MG, UNK
     Route: 064
     Dates: start: 20091010
  5. IRON [Concomitant]
     Indication: ANAEMIA
     Dosage: UNK
     Route: 064
  6. ZOLOFT [Suspect]
     Indication: DEPRESSION
  7. ZOLOFT [Suspect]
     Indication: POSTPARTUM DEPRESSION
  8. MULTI-VITAMINS [Concomitant]
     Dosage: UNK, ONCE DAILY
     Route: 064
  9. EFFEXOR [Suspect]
     Dosage: UNK
     Route: 064

REACTIONS (9)
  - MATERNAL EXPOSURE TIMING UNSPECIFIED [None]
  - ANAEMIA HAEMOLYTIC AUTOIMMUNE [None]
  - CLEFT PALATE [None]
  - NEONATAL RESPIRATORY DISTRESS SYNDROME [None]
  - NEONATAL TACHYPNOEA [None]
  - CYANOSIS [None]
  - ECCHYMOSIS [None]
  - CARDIAC MURMUR [None]
  - CLEFT LIP [None]
